FAERS Safety Report 5267104-5 (Version None)
Quarter: 2007Q1

REPORT INFORMATION
  Report Type: 
  Country: None (occurrence: None)
  Receive Date: 20070316
  Receipt Date: 20070306
  Transmission Date: 20070707
  Serious: Yes (Other)
  Sender: FDA-Public Use
  Company Number: MX-JNJFOC-20070302454

PATIENT
  Age: 10 Year
  Sex: Male
  Weight: 20 kg

DRUGS (7)
  1. TOPAMAX [Suspect]
  2. TOPAMAX [Suspect]
  3. TOPAMAX [Suspect]
     Indication: EPILEPSY
  4. TRILEPTAL [Concomitant]
     Indication: CONVULSION
  5. CLOBAZAM [Concomitant]
     Indication: CONVULSION
  6. DIPHENYLHYDANTOIN [Concomitant]
     Indication: CONVULSION
  7. CLONAZEPAM [Concomitant]
     Indication: CONVULSION
     Dosage: ONE-HALF TABLET DAILY

REACTIONS (1)
  - RENAL DISORDER [None]
